FAERS Safety Report 8729577 (Version 6)
Quarter: 2013Q2

REPORT INFORMATION
  Report Type: Spontaneous
  Country: US (occurrence: US)
  Receive Date: 20120817
  Receipt Date: 20130419
  Transmission Date: 20140414
  Serious: Yes (Hospitalization)
  Sender: FDA-Public Use
  Company Number: US-B.I. PHARMACEUTICALS,INC./RIDGEFIELD-2012-BP-18732BP

PATIENT
  Sex: Male
  Weight: 104.33 kg

DRUGS (15)
  1. PRADAXA [Suspect]
     Indication: ANTICOAGULANT THERAPY
     Dosage: 300 MG
     Route: 048
     Dates: start: 20101112
  2. PRADAXA [Suspect]
     Indication: ATRIAL FIBRILLATION
  3. METOPROLOL [Concomitant]
     Dates: start: 2005
  4. ISOSORBIDE [Concomitant]
     Dates: start: 2005
  5. NEXIUM [Concomitant]
     Dates: start: 2005
  6. LIPITOR [Concomitant]
     Dates: start: 2005
  7. SINGULAIR [Concomitant]
     Dates: start: 2005
  8. FUROSEMIDE [Concomitant]
     Dates: start: 2005
  9. NOVOLOG [Concomitant]
     Dates: start: 2005
  10. LEVEMIR [Concomitant]
     Dates: start: 2005
  11. SPIRIVA [Concomitant]
  12. NITROGLYCERIN [Concomitant]
  13. LUTEIN [Concomitant]
  14. HUMULIN [Concomitant]
  15. FISH OIL [Concomitant]

REACTIONS (2)
  - Haemothorax [Unknown]
  - Gastrointestinal haemorrhage [Unknown]
